FAERS Safety Report 10284229 (Version 1)
Quarter: 2014Q3

REPORT INFORMATION
  Report Type: Spontaneous
  Country: US (occurrence: None)
  Receive Date: 20140703
  Receipt Date: 20140703
  Transmission Date: 20150326
  Serious: Yes (Other)
  Sender: FDA-Public Use
  Company Number: None

PATIENT
  Age: 29 Year
  Sex: Male
  Weight: 72.58 kg

DRUGS (1)
  1. SYNTHETIC POT [Suspect]
     Active Substance: CANNABINOL

REACTIONS (6)
  - Mental disorder [None]
  - Product label issue [None]
  - Impaired driving ability [None]
  - Legal problem [None]
  - Loss of employment [None]
  - Product quality issue [None]

NARRATIVE: CASE EVENT DATE: 20140630
